FAERS Safety Report 24620944 (Version 3)
Quarter: 2025Q2

REPORT INFORMATION
  Report Type: Report from Study
  Country: US (occurrence: US)
  Receive Date: 20241114
  Receipt Date: 20250407
  Transmission Date: 20250716
  Serious: Yes (Other)
  Sender: NOVARTIS
  Company Number: US-002147023-NVSC2024US182846

PATIENT
  Age: 48 Year
  Sex: Female

DRUGS (2)
  1. KESIMPTA [Suspect]
     Active Substance: OFATUMUMAB
     Indication: Multiple sclerosis
     Dosage: 20 MG, QMO
     Route: 058
     Dates: start: 20240509
  2. KESIMPTA [Suspect]
     Active Substance: OFATUMUMAB
     Dosage: UNK, QMO
     Route: 058
     Dates: start: 202407, end: 20241204

REACTIONS (9)
  - Invasive ductal breast carcinoma [Unknown]
  - Influenza like illness [Recovered/Resolved]
  - Pain [Recovered/Resolved]
  - Feeling cold [Recovered/Resolved]
  - Malaise [Recovered/Resolved]
  - Malaise [Unknown]
  - Influenza like illness [Unknown]
  - Feeling cold [Unknown]
  - Pain [Unknown]

NARRATIVE: CASE EVENT DATE: 20240917
